FAERS Safety Report 6838518-4 (Version None)
Quarter: 2010Q3

REPORT INFORMATION
  Report Type: 
  Country: None (occurrence: None)
  Receive Date: 20100713
  Receipt Date: 20070613
  Transmission Date: 20110219
  Serious: No
  Sender: FDA-Public Use
  Company Number: US-PFIZER INC-2007050217

PATIENT
  Sex: Female
  Weight: 100.2 kg

DRUGS (4)
  1. CHANTIX [Suspect]
     Indication: SMOKING CESSATION THERAPY
     Dates: start: 20070601
  2. ZOLOFT [Concomitant]
  3. OXYGEN [Concomitant]
  4. CLORAZEPATE DIPOTASSIUM [Concomitant]
     Indication: SLEEP DISORDER

REACTIONS (4)
  - ARTHROPATHY [None]
  - DEPRESSION [None]
  - INSOMNIA [None]
  - MIGRAINE [None]
